FAERS Safety Report 8846410 (Version 1)
Quarter: 2012Q4

REPORT INFORMATION
  Report Type: 
  Country: US (occurrence: US)
  Receive Date: 20121018
  Receipt Date: 20121018
  Transmission Date: 20130627
  Serious: No
  Sender: FDA-Public Use
  Company Number: US-009507513-1210USA002371

PATIENT
  Sex: Female

DRUGS (3)
  1. JANUVIA [Suspect]
     Dosage: 100 mg, qd
     Route: 048
  2. JANUVIA [Suspect]
     Dosage: 200 mg, qd
     Route: 048
  3. SIMVASTATIN TABLETS, USP [Concomitant]
     Route: 048

REACTIONS (3)
  - Accidental overdose [Unknown]
  - Drug dispensing error [Unknown]
  - No adverse event [Unknown]
